FAERS Safety Report 13009195 (Version 2)
Quarter: 2016Q4

REPORT INFORMATION
  Report Type: Spontaneous
  Country: US (occurrence: US)
  Receive Date: 20161208
  Receipt Date: 20161222
  Transmission Date: 20170207
  Serious: Yes (Hospitalization, Disabling)
  Sender: FDA-Public Use
  Company Number: US-NOVOPROD-521559

PATIENT
  Age: 58 Year
  Sex: Male

DRUGS (1)
  1. VICTOZA [Suspect]
     Active Substance: LIRAGLUTIDE
     Indication: DIABETES MELLITUS
     Dosage: UNKNOWN
     Route: 058
     Dates: start: 20140730, end: 2015

REACTIONS (9)
  - Acute respiratory failure [Unknown]
  - Encephalopathy [Unknown]
  - Pancreatic cyst [Unknown]
  - Malnutrition [Unknown]
  - Sepsis [Unknown]
  - Fall [Unknown]
  - Craniocerebral injury [Unknown]
  - Pancreatitis acute [Unknown]
  - Pancreatitis necrotising [Unknown]

NARRATIVE: CASE EVENT DATE: 2015
